FAERS Safety Report 6989255-7 (Version None)
Quarter: 2010Q3

REPORT INFORMATION
  Report Type: 
  Country: None (occurrence: None)
  Receive Date: 20100916
  Receipt Date: 20091029
  Transmission Date: 20110219
  Serious: Yes (Other)
  Sender: FDA-Public Use
  Company Number: GB-PFIZER INC-2009273377

PATIENT
  Age: 57 Year
  Sex: Female

DRUGS (2)
  1. LYRICA [Suspect]
     Dosage: 300 MG, UNK
     Route: 048
     Dates: start: 20090801
  2. GABAPENTIN [Concomitant]

REACTIONS (3)
  - DRUG DISPENSING ERROR [None]
  - HEADACHE [None]
  - MULTIPLE SCLEROSIS RELAPSE [None]
